FAERS Safety Report 18097768 (Version 3)
Quarter: 2020Q4

REPORT INFORMATION
  Report Type: Spontaneous
  Country: JP (occurrence: JP)
  Receive Date: 20200730
  Receipt Date: 20201130
  Transmission Date: 20210113
  Serious: Yes (Death, Hospitalization, Other)
  Sender: FDA-Public Use
  Company Number: JP-BRISTOL-MYERS SQUIBB COMPANY-BMS-2020-013716

PATIENT
  Age: 57 Year
  Sex: Female
  Weight: 46.9 kg

DRUGS (8)
  1. BRAFTOVI [Suspect]
     Active Substance: ENCORAFENIB
     Indication: MALIGNANT MELANOMA
     Dosage: 450 MILLIGRAM, QD
     Route: 048
     Dates: start: 20191217, end: 20191230
  2. BRAFTOVI [Suspect]
     Active Substance: ENCORAFENIB
     Dosage: 450 MILLIGRAM, QD
     Route: 048
     Dates: start: 20200110, end: 20200219
  3. YERVOY [Suspect]
     Active Substance: IPILIMUMAB
     Indication: MALIGNANT MELANOMA
     Dosage: 137 MILLIGRAM, Q3WK
     Route: 041
     Dates: start: 20190918, end: 20191120
  4. MEKTOVI [Suspect]
     Active Substance: BINIMETINIB
     Indication: MALIGNANT MELANOMA
     Dosage: 90 MILLIGRAM, QD
     Route: 048
     Dates: start: 20191217, end: 20191230
  5. MEKTOVI [Suspect]
     Active Substance: BINIMETINIB
     Dosage: 90 MILLIGRAM, QD
     Route: 048
     Dates: start: 20200110, end: 20200220
  6. OPDIVO [Suspect]
     Active Substance: NIVOLUMAB
     Indication: MALIGNANT MELANOMA
     Dosage: 80 MILLIGRAM, Q3WK
     Route: 041
     Dates: start: 20190918, end: 20191210
  7. BRAFTOVI [Suspect]
     Active Substance: ENCORAFENIB
     Dosage: 300 MILLIGRAM, QD
     Route: 048
     Dates: start: 20200106, end: 20200106
  8. MEKTOVI [Suspect]
     Active Substance: BINIMETINIB
     Dosage: 60 MILLIGRAM, QD
     Route: 048
     Dates: start: 20200106, end: 20200106

REACTIONS (5)
  - Diarrhoea [Recovering/Resolving]
  - Liver disorder [Recovering/Resolving]
  - Serous retinal detachment [Recovered/Resolved]
  - Malignant neoplasm progression [Fatal]
  - Pyrexia [Recovering/Resolving]

NARRATIVE: CASE EVENT DATE: 201912
